FAERS Safety Report 9343924 (Version 1)
Quarter: 2013Q2

REPORT INFORMATION
  Report Type: Spontaneous
  Country: US (occurrence: US)
  Receive Date: 20130612
  Receipt Date: 20130612
  Transmission Date: 20140414
  Serious: Yes (Hospitalization)
  Sender: FDA-Public Use
  Company Number: US-BAYER-2013-070830

PATIENT
  Age: 18 Year
  Sex: Female

DRUGS (1)
  1. YASMIN [Suspect]

REACTIONS (3)
  - Deep vein thrombosis [Recovering/Resolving]
  - Pelvic venous thrombosis [Recovering/Resolving]
  - Vena cava thrombosis [None]
